FAERS Safety Report 25306087 (Version 1)
Quarter: 2025Q2

REPORT INFORMATION
  Report Type: Spontaneous
  Country: US (occurrence: None)
  Receive Date: 20250513
  Receipt Date: 20250513
  Transmission Date: 20250717
  Serious: No
  Sender: FDA-CTU
  Company Number: None

PATIENT
  Age: 65 Year
  Sex: Male
  Weight: 91.35 kg

DRUGS (6)
  1. DIETARY SUPPLEMENT [Suspect]
     Active Substance: DIETARY SUPPLEMENT
     Indication: Weight decreased
     Route: 048
     Dates: start: 20250509, end: 20250511
  2. METFORMIN [Suspect]
     Active Substance: METFORMIN HYDROCHLORIDE
     Dosage: FREQUENCY : DAILY;?
  3. VITAMINS [Concomitant]
     Active Substance: VITAMINS
  4. calcium, B12 [Concomitant]
  5. FISH OIL [Concomitant]
     Active Substance: FISH OIL
  6. HERBALS\TURMERIC [Concomitant]
     Active Substance: HERBALS\TURMERIC

REACTIONS (5)
  - Dizziness [None]
  - Paraesthesia [None]
  - Paraesthesia [None]
  - Hypoglycaemia [None]
  - Drug interaction [None]

NARRATIVE: CASE EVENT DATE: 20250511
